FAERS Safety Report 8579932-9 (Version None)
Quarter: 2012Q3

REPORT INFORMATION
  Report Type: 
  Country: None (occurrence: None)
  Receive Date: 20120808
  Receipt Date: 20120726
  Transmission Date: 20120928
  Serious: Yes (Hospitalization)
  Sender: FDA-Public Use
  Company Number: DE-ELI_LILLY_AND_COMPANY-DE201207008010

PATIENT
  Age: 40 Year
  Sex: Female

DRUGS (2)
  1. DULOXETINE HYDROCHLORIDE [Suspect]
     Dosage: 60MG, UNK
     Route: 048
  2. CYMBALTA [Suspect]
     Dosage: 60MG, UNKNOWN
     Route: 048

REACTIONS (2)
  - PSYCHIATRIC DECOMPENSATION [None]
  - HOSPITALISATION [None]
